FAERS Safety Report 5547736-7 (Version None)
Quarter: 2007Q4

REPORT INFORMATION
  Report Type: 
  Country: None (occurrence: None)
  Receive Date: 20071128
  Receipt Date: 20070402
  Transmission Date: 20080405
  Serious: Yes (Other)
  Sender: FDA-Public Use
  Company Number: 2007027362

PATIENT
  Age: 80 Year
  Sex: Male

DRUGS (11)
  1. LIPITOR [Suspect]
  2. GLYBURIDE [Concomitant]
  3. METFORMIN (METFORMIN) [Concomitant]
  4. ALTACE [Concomitant]
  5. PREVACID [Concomitant]
  6. ALPRAZOLAM [Concomitant]
  7. TAMSULOSIN HCL [Concomitant]
  8. TERAZOSIN HCL [Concomitant]
  9. TRIAMTERENE (TRIAMTERENE) [Concomitant]
  10. ACETYLSALICYIC ACID (ACETYLSALICYIC ACID) [Concomitant]
  11. CLARITIN [Concomitant]

REACTIONS (1)
  - BLOOD GLUCOSE INCREASED [None]
